FAERS Safety Report 8136098-7 (Version None)
Quarter: 2012Q1

REPORT INFORMATION
  Report Type: 
  Country: None (occurrence: None)
  Receive Date: 20120214
  Receipt Date: 20111215
  Transmission Date: 20120608
  Serious: No
  Sender: FDA-Public Use
  Company Number: US-COVIDIEN/TYCO HEALTHCARE/MALLINCKRODT-T201102630

PATIENT
  Sex: Female
  Weight: 70.295 kg

DRUGS (2)
  1. FENTANYL [Concomitant]
     Indication: PAIN
     Dosage: 100 UG/HR, Q48 HRS
     Route: 062
     Dates: end: 20111108
  2. FENTANYL-100 [Suspect]
     Indication: PAIN
     Dosage: 100 UG/HR, Q 48 HRS
     Dates: start: 20111108

REACTIONS (3)
  - APPLICATION SITE VESICLES [None]
  - DRUG EFFECT DECREASED [None]
  - APPLICATION SITE RASH [None]
